FAERS Safety Report 25706055 (Version 4)
Quarter: 2025Q4

REPORT INFORMATION
  Report Type: Spontaneous
  Country: US (occurrence: US)
  Receive Date: 20250820
  Receipt Date: 20251007
  Transmission Date: 20260118
  Serious: Yes (Hospitalization, Other)
  Sender: COREPHARMA LLC
  Company Number: US-CorePharma LLC-2182874

PATIENT
  Sex: Male

DRUGS (4)
  1. TORSEMIDE [Suspect]
     Active Substance: TORSEMIDE
     Indication: Cardiac failure congestive
     Dates: start: 20241027, end: 20241224
  2. TORSEMIDE [Suspect]
     Active Substance: TORSEMIDE
     Indication: Nephropathy
  3. DEMADEX [Suspect]
     Active Substance: TORSEMIDE
  4. SOAANZ [Suspect]
     Active Substance: TORSEMIDE

REACTIONS (6)
  - Drug ineffective [Unknown]
  - Product substitution issue [Unknown]
  - Therapeutic response changed [Unknown]
  - Disease recurrence [Recovering/Resolving]
  - Cardiac failure congestive [Recovering/Resolving]
  - Product substitution issue [Unknown]

NARRATIVE: CASE EVENT DATE: 20241027
